FAERS Safety Report 24312511 (Version 1)
Quarter: 2024Q3

REPORT INFORMATION
  Report Type: Spontaneous
  Country: US (occurrence: US)
  Receive Date: 20240912
  Receipt Date: 20240912
  Transmission Date: 20241016
  Serious: No
  Sender: PFIZER
  Company Number: US-PFIZER INC-PV202400118478

PATIENT
  Sex: Female

DRUGS (1)
  1. TIKOSYN [Suspect]
     Active Substance: DOFETILIDE
     Dosage: 250 MG

REACTIONS (4)
  - Vision blurred [Unknown]
  - Chills [Unknown]
  - Swelling [Unknown]
  - Nausea [Unknown]

NARRATIVE: CASE EVENT DATE: 20240101
